FAERS Safety Report 4580770-2 (Version None)
Quarter: 2005Q1

REPORT INFORMATION
  Report Type: 
  Country: None (occurrence: None)
  Receive Date: 20050214
  Receipt Date: 20040601
  Transmission Date: 20050727
  Serious: Yes (Other)
  Sender: FDA-Public Use
  Company Number: US-GLAXOSMITHKLINE-A0512877A

PATIENT
  Age: 32 Year
  Sex: Male

DRUGS (4)
  1. LAMICTAL [Suspect]
     Indication: BIPOLAR DISORDER
     Dosage: 100MG TWICE PER DAY
     Route: 048
     Dates: start: 20040420, end: 20040527
  2. ABILIFY [Concomitant]
     Dosage: 15MG PER DAY
  3. RISPERDAL [Concomitant]
     Dosage: .5MG TWICE PER DAY
     Route: 048
  4. RISPERDAL [Concomitant]
     Dosage: 1MG AT NIGHT
     Route: 048

REACTIONS (1)
  - STEVENS-JOHNSON SYNDROME [None]
